FAERS Safety Report 23246273 (Version 1)
Quarter: 2023Q4

REPORT INFORMATION
  Report Type: Spontaneous
  Country: BR (occurrence: BR)
  Receive Date: 20231130
  Receipt Date: 20231130
  Transmission Date: 20240109
  Serious: Yes (Hospitalization, Other)
  Sender: FDA-Public Use
  Company Number: BR-AMGEN-BRASP2023210398

PATIENT
  Age: 43 Year
  Sex: Female

DRUGS (3)
  1. CINACALCET HYDROCHLORIDE [Suspect]
     Active Substance: CINACALCET HYDROCHLORIDE
     Indication: Hyperparathyroidism
     Dosage: UNK
     Route: 065
  2. PARICALCITOL [Concomitant]
     Active Substance: PARICALCITOL
     Dosage: 15 PICOGRAM, QWK
     Route: 065
  3. SEVELAMER [Concomitant]
     Active Substance: SEVELAMER
     Dosage: 7.2 GRAM, QD
     Route: 065

REACTIONS (5)
  - Extraskeletal ossification [Unknown]
  - Femoral neck fracture [Unknown]
  - Brown tumour [Unknown]
  - Hyperparathyroidism secondary [Unknown]
  - Drug intolerance [Unknown]
